FAERS Safety Report 12690557 (Version 2)
Quarter: 2016Q3

REPORT INFORMATION
  Report Type: Spontaneous
  Country: JP (occurrence: JP)
  Receive Date: 20160826
  Receipt Date: 20160913
  Transmission Date: 20161109
  Serious: Yes (Death, Other)
  Sender: FDA-Public Use
  Company Number: JP-AMGEN-JPNSP2016113025

PATIENT

DRUGS (1)
  1. REGPARA [Suspect]
     Active Substance: CINACALCET HYDROCHLORIDE
     Indication: PRODUCT USED FOR UNKNOWN INDICATION
     Dosage: UNK
     Route: 065

REACTIONS (11)
  - Sudden death [Fatal]
  - Angina pectoris [Unknown]
  - Arrhythmia [Fatal]
  - Cerebral haemorrhage [Unknown]
  - Acute myocardial infarction [Fatal]
  - Subarachnoid haemorrhage [Unknown]
  - Fracture [Unknown]
  - Death [Fatal]
  - Cardiac failure [Fatal]
  - Cerebral infarction [Unknown]
  - Peripheral arterial occlusive disease [Unknown]
